FAERS Safety Report 24794306 (Version 1)
Quarter: 2024Q4

REPORT INFORMATION
  Report Type: Spontaneous
  Country: US (occurrence: US)
  Receive Date: 20241231
  Receipt Date: 20241231
  Transmission Date: 20250114
  Serious: Yes (Other)
  Sender: RANBAXY
  Company Number: US-SUN PHARMACEUTICAL INDUSTRIES LTD-2024R1-486817

PATIENT
  Age: 42 Year
  Sex: Female

DRUGS (1)
  1. KETOCONAZOLE [Suspect]
     Active Substance: KETOCONAZOLE
     Indication: Phaeochromocytoma
     Dosage: 200 MILLIGRAM, QD
     Route: 065

REACTIONS (1)
  - Ejection fraction decreased [Recovering/Resolving]
